FAERS Safety Report 5615566-3 (Version None)
Quarter: 2008Q1

REPORT INFORMATION
  Report Type: 
  Country: None (occurrence: None)
  Receive Date: 20080205
  Receipt Date: 20080205
  Transmission Date: 20080703
  Serious: No
  Sender: FDA-Public Use
  Company Number: None

PATIENT
  Age: 38 Year
  Sex: Female
  Weight: 63.5036 kg

DRUGS (1)
  1. CIPROFLOXACIN 250 NG TARTAN RANBAXY [Suspect]
     Indication: URINARY TRACT INFECTION
     Dosage: 250 MG TWICE A DAY PO
     Route: 048
     Dates: start: 20080126, end: 20080128

REACTIONS (4)
  - DEPRESSION [None]
  - FEELING ABNORMAL [None]
  - MYALGIA [None]
  - PARAESTHESIA [None]
